FAERS Safety Report 20797918 (Version 1)
Quarter: 2022Q2

REPORT INFORMATION
  Report Type: Spontaneous
  Country: US (occurrence: US)
  Receive Date: 20220506
  Receipt Date: 20220506
  Transmission Date: 20220721
  Serious: Yes (Other)
  Sender: FDA-Public Use
  Company Number: US-009507513-2205USA001895

PATIENT
  Sex: Male
  Weight: 68 kg

DRUGS (11)
  1. KEYTRUDA [Suspect]
     Active Substance: PEMBROLIZUMAB
     Indication: Metastatic malignant melanoma
     Dosage: 400 MILLIGRAMS EVERY 42 DAYS
     Route: 042
     Dates: start: 20220209, end: 20220209
  2. LENVATINIB MESYLATE [Suspect]
     Active Substance: LENVATINIB MESYLATE
     Dosage: 10 MILLIGRAMS DAILY
     Route: 048
     Dates: start: 20220307
  3. LENVATINIB MESYLATE [Suspect]
     Active Substance: LENVATINIB MESYLATE
     Dosage: EVERY OTHER DAY
     Dates: start: 20220314
  4. LENVATINIB MESYLATE [Suspect]
     Active Substance: LENVATINIB MESYLATE
     Dosage: 8 MILLIGRAMS DAILY
     Dates: start: 202204
  5. ELIQUIS [Concomitant]
     Active Substance: APIXABAN
  6. ATENOLOL [Concomitant]
     Active Substance: ATENOLOL
     Dosage: 1 TABLET DAILY
     Route: 048
  7. ASPIRIN [Concomitant]
     Active Substance: ASPIRIN
     Dosage: 81 MILLIGRAMS, DAILY
     Route: 048
  8. ATORVASTATIN [Concomitant]
     Active Substance: ATORVASTATIN
     Dosage: 1 TABLET DAILY
  9. ZOFRAN [Concomitant]
     Active Substance: ONDANSETRON HYDROCHLORIDE
     Dosage: UNK, PRN
  10. COMPAZINE [Concomitant]
     Active Substance: PROCHLORPERAZINE MALEATE
     Dosage: UNK, PRN
  11. VERAPAMIL [Concomitant]
     Active Substance: VERAPAMIL HYDROCHLORIDE

REACTIONS (26)
  - Cachexia [Unknown]
  - Malignant neoplasm progression [Unknown]
  - Aortic arteriosclerosis [Unknown]
  - Arteriosclerosis coronary artery [Unknown]
  - Asthenia [Unknown]
  - Malaise [Unknown]
  - Nausea [Unknown]
  - Inflammation [Unknown]
  - Weight decreased [Unknown]
  - Blood alkaline phosphatase decreased [Unknown]
  - Drug intolerance [Recovered/Resolved]
  - Oesophageal disorder [Unknown]
  - Aortic aneurysm [Unknown]
  - Malaise [Unknown]
  - Gastrointestinal sounds abnormal [Unknown]
  - Spleen scan abnormal [Unknown]
  - Prostate examination abnormal [Unknown]
  - Lymphadenopathy [Unknown]
  - Retroperitoneal disorder [Unknown]
  - Injection related reaction [Unknown]
  - Protein total decreased [Unknown]
  - Blood bilirubin increased [Unknown]
  - Haemoglobin decreased [Unknown]
  - Haemoglobin decreased [Unknown]
  - Red cell distribution width increased [Unknown]
  - Red cell distribution width increased [Unknown]

NARRATIVE: CASE EVENT DATE: 20220101
